FAERS Safety Report 14932284 (Version 3)
Quarter: 2018Q3

REPORT INFORMATION
  Report Type: Report from Study
  Country: AU (occurrence: AU)
  Receive Date: 20180524
  Receipt Date: 20180802
  Transmission Date: 20181010
  Serious: Yes (Hospitalization, Other)
  Sender: FDA-Public Use
  Company Number: AU-REGENERON PHARMACEUTICALS, INC.-2018-24236

PATIENT

DRUGS (2)
  1. EYLEA [Suspect]
     Active Substance: AFLIBERCEPT
     Dosage: 1 DF, ONCE; LAST INJECTION PRIOR TO THE EVENT
     Route: 031
     Dates: start: 20180316, end: 20180316
  2. EYLEA [Suspect]
     Active Substance: AFLIBERCEPT
     Indication: NEOVASCULAR AGE-RELATED MACULAR DEGENERATION
     Dosage: RIGHT EYE,TOTAL OF 6 EYLEA DOSES
     Route: 031
     Dates: start: 201609

REACTIONS (4)
  - Eye infection staphylococcal [Recovered/Resolved]
  - Blindness transient [Recovered/Resolved]
  - Vision blurred [Not Recovered/Not Resolved]
  - Inadequate aseptic technique in use of product [Unknown]

NARRATIVE: CASE EVENT DATE: 2018
